FAERS Safety Report 7437750-9 (Version None)
Quarter: 2011Q2

REPORT INFORMATION
  Report Type: 
  Country: None (occurrence: None)
  Receive Date: 20110426
  Receipt Date: 20110420
  Transmission Date: 20111010
  Serious: Yes (Hospitalization, Disabling, Other)
  Sender: FDA-Public Use
  Company Number: US-PFIZER INC-2011086701

PATIENT
  Sex: Male
  Weight: 149.66 kg

DRUGS (4)
  1. XANAX [Suspect]
     Indication: ANXIETY
  2. XANAX [Suspect]
     Indication: PANIC DISORDER
     Dosage: 2 MG, 4X/DAY
     Route: 048
  3. PROZAC [Concomitant]
     Indication: DEPRESSION
     Dosage: 80 MG, UNK
  4. POTASSIUM [Concomitant]
     Indication: FLUID IMBALANCE
     Dosage: UNK

REACTIONS (14)
  - TREMOR [None]
  - CHEST PAIN [None]
  - DYSPNOEA [None]
  - CARDIAC FAILURE CONGESTIVE [None]
  - BLOOD CHOLESTEROL INCREASED [None]
  - DYSKINESIA [None]
  - ATRIAL FIBRILLATION [None]
  - ACTIVITIES OF DAILY LIVING IMPAIRED [None]
  - CHRONIC OBSTRUCTIVE PULMONARY DISEASE [None]
  - HYPOTHYROIDISM [None]
  - DIABETES MELLITUS [None]
  - NEUROPATHY PERIPHERAL [None]
  - HYPERTENSION [None]
  - RESTLESS LEGS SYNDROME [None]
